FAERS Safety Report 11290944 (Version 1)
Quarter: 2015Q3

REPORT INFORMATION
  Report Type: Spontaneous
  Country: JP (occurrence: JP)
  Receive Date: 20150722
  Receipt Date: 20150722
  Transmission Date: 20151125
  Serious: Yes (Other)
  Sender: FDA-Public Use
  Company Number: JP-SA-2015SA084687

PATIENT
  Age: 66 Year
  Sex: Female
  Weight: 45 kg

DRUGS (6)
  1. PLAVIX [Suspect]
     Active Substance: CLOPIDOGREL BISULFATE
     Indication: CEREBRAL INFARCTION
     Route: 048
  2. LIVALO [Concomitant]
     Active Substance: PITAVASTATIN CALCIUM
  3. PLETAAL [Concomitant]
     Active Substance: CILOSTAZOL
     Indication: CEREBRAL INFARCTION
     Route: 048
  4. GASTER [Concomitant]
     Active Substance: FAMOTIDINE
  5. SENNARIDE [Concomitant]
     Active Substance: SENNOSIDES A AND B
  6. ZOLPIDEM [Concomitant]
     Active Substance: ZOLPIDEM\ZOLPIDEM TARTRATE

REACTIONS (1)
  - Transient ischaemic attack [Unknown]
